FAERS Safety Report 4536563-5 (Version None)
Quarter: 2004Q4

REPORT INFORMATION
  Report Type: 
  Country: None (occurrence: None)
  Receive Date: 20041223
  Receipt Date: 20041029
  Transmission Date: 20050328
  Serious: No
  Sender: FDA-Public Use
  Company Number: US-GLAXOSMITHKLINE-A0532889A

PATIENT
  Age: 50 Year
  Sex: Male

DRUGS (1)
  1. TAGAMET [Suspect]
     Indication: DRUG USE FOR UNKNOWN INDICATION
     Route: 065

REACTIONS (4)
  - HYPERSENSITIVITY [None]
  - IMMUNE SYSTEM DISORDER [None]
  - PRURITUS [None]
  - RASH MACULAR [None]
